FAERS Safety Report 19280554 (Version 6)
Quarter: 2025Q2

REPORT INFORMATION
  Report Type: Spontaneous
  Country: FR (occurrence: FR)
  Receive Date: 20210521
  Receipt Date: 20250429
  Transmission Date: 20250716
  Serious: Yes (Hospitalization, Other)
  Sender: AUROBINDO
  Company Number: FR-AFSSAPS-BR20211451

PATIENT
  Age: 65 Year
  Sex: Female
  Weight: 96 kg

DRUGS (2)
  1. DULOXETINE [Suspect]
     Active Substance: DULOXETINE
     Indication: Depression
     Dosage: 60 MILLIGRAM, ONCE A DAY
     Route: 048
     Dates: start: 20210407, end: 20210427
  2. AMOXICILLIN [Concomitant]
     Active Substance: AMOXICILLIN
     Indication: Intertrigo
     Route: 065

REACTIONS (1)
  - Acute generalised exanthematous pustulosis [Recovering/Resolving]

NARRATIVE: CASE EVENT DATE: 20210419
